FAERS Safety Report 17484139 (Version 1)
Quarter: 2020Q1

REPORT INFORMATION
  Report Type: Spontaneous
  Country: FR (occurrence: FR)
  Receive Date: 20200302
  Receipt Date: 20200302
  Transmission Date: 20200409
  Serious: No
  Sender: FDA-Public Use
  Company Number: FR-TOLMAR, INC.-19FR019795

PATIENT
  Sex: Male

DRUGS (1)
  1. ELIGARD [Suspect]
     Active Substance: LEUPROLIDE ACETATE
     Indication: PROSTATE CANCER
     Dosage: 45 MG, UNKNOWN FREQUENCY
     Route: 065

REACTIONS (3)
  - Intercepted product preparation error [None]
  - Product leakage [None]
  - Wrong technique in product usage process [None]

NARRATIVE: CASE EVENT DATE: 20191219
